FAERS Safety Report 9169698 (Version 1)
Quarter: 2013Q1

REPORT INFORMATION
  Report Type: Spontaneous
  Country: CH (occurrence: CH)
  Receive Date: 20130318
  Receipt Date: 20130318
  Transmission Date: 20140127
  Serious: Yes (Other)
  Sender: FDA-Public Use
  Company Number: CH-CELGENEUS-151-21660-13031090

PATIENT
  Sex: Female

DRUGS (2)
  1. ABRAXANE [Suspect]
     Indication: NEOPLASM
     Route: 065
     Dates: start: 201207, end: 201212
  2. GEMZAR [Concomitant]
     Indication: NEOPLASM
     Route: 065
     Dates: start: 201207, end: 201212

REACTIONS (3)
  - Jaundice [Recovered/Resolved]
  - Upper limb fracture [Unknown]
  - Femur fracture [Unknown]
